FAERS Safety Report 12683862 (Version 2)
Quarter: 2016Q3

REPORT INFORMATION
  Report Type: Spontaneous
  Country: BR (occurrence: BR)
  Receive Date: 20160825
  Receipt Date: 20160826
  Transmission Date: 20161109
  Serious: Yes (Other)
  Sender: FDA-Public Use
  Company Number: BR-PFIZER INC-2016390105

PATIENT
  Sex: Female

DRUGS (1)
  1. XALATAN [Suspect]
     Active Substance: LATANOPROST

REACTIONS (7)
  - Cough [Unknown]
  - Arthralgia [Unknown]
  - Tachycardia [Unknown]
  - Intentional product misuse [Unknown]
  - Blood pressure abnormal [Unknown]
  - Fatigue [Unknown]
  - Eye pain [Unknown]

NARRATIVE: CASE EVENT DATE: 2016
